FAERS Safety Report 7768594-6 (Version None)
Quarter: 2011Q3

REPORT INFORMATION
  Report Type: 
  Country: None (occurrence: None)
  Receive Date: 20110922
  Receipt Date: 20101213
  Transmission Date: 20111222
  Serious: No
  Sender: FDA-Public Use
  Company Number: US-ASTRAZENECA-2010SE58893

PATIENT
  Sex: Female

DRUGS (2)
  1. WELLBUTRIN [Concomitant]
  2. SEROQUEL [Suspect]
     Indication: MAJOR DEPRESSION
     Route: 048
     Dates: start: 20090101

REACTIONS (2)
  - MEMORY IMPAIRMENT [None]
  - INITIAL INSOMNIA [None]
